FAERS Safety Report 6469416-6 (Version None)
Quarter: 2009Q4

REPORT INFORMATION
  Report Type: 
  Country: None (occurrence: None)
  Receive Date: 20091202
  Receipt Date: 20091202
  Transmission Date: 20100525
  Serious: Yes (Hospitalization)
  Sender: FDA-Public Use
  Company Number: None

PATIENT
  Age: 79 Year
  Sex: Male
  Weight: 88.2 kg

DRUGS (1)
  1. WARFARIN SODIUM [Suspect]
     Dosage: 7.5 MG EVERY DAY PO
     Route: 048
     Dates: start: 20040524, end: 20081208

REACTIONS (6)
  - ASTHENIA [None]
  - EPISTAXIS [None]
  - HAEMORRHAGE [None]
  - INTERNATIONAL NORMALISED RATIO INCREASED [None]
  - LOWER GASTROINTESTINAL HAEMORRHAGE [None]
  - PAIN IN EXTREMITY [None]
